FAERS Safety Report 4820926-4 (Version None)
Quarter: 2005Q4

REPORT INFORMATION
  Report Type: 
  Country: None (occurrence: None)
  Receive Date: 20051103
  Receipt Date: 20051103
  Transmission Date: 20060501
  Serious: Yes (Hospitalization)
  Sender: FDA-Public Use
  Company Number: None

PATIENT
  Age: 49 Year
  Sex: Male
  Weight: 86.6 kg

DRUGS (1)
  1. RIBAVIRIN [Suspect]

REACTIONS (1)
  - ANAEMIA [None]
